FAERS Safety Report 10037585 (Version 1)
Quarter: 2014Q1

REPORT INFORMATION
  Report Type: Spontaneous
  Country: US (occurrence: None)
  Receive Date: 20140325
  Receipt Date: 20140325
  Transmission Date: 20141002
  Serious: Yes (Hospitalization)
  Sender: FDA-Public Use
  Company Number: None

PATIENT
  Age: 79 Year
  Sex: Female
  Weight: 54 kg

DRUGS (26)
  1. INVOKANA [Suspect]
     Indication: DIABETES MELLITUS
     Route: 048
  2. LEVOXYL [Concomitant]
  3. GLIPIZIDE [Concomitant]
  4. AMLODIPINE [Concomitant]
  5. SOTALOL [Concomitant]
  6. VITAMIN B12 [Concomitant]
  7. VITAMIN B6 [Concomitant]
  8. FOLIC ACID [Concomitant]
  9. VITAMIN D [Concomitant]
  10. KCL [Concomitant]
  11. COENZYME Q10 [Concomitant]
  12. ZYRTEC [Suspect]
  13. VITAMIN C [Concomitant]
  14. GARLIC [Concomitant]
  15. MILK THISTLE [Concomitant]
  16. ATENOLOL [Concomitant]
  17. RIVAROXABAN [Suspect]
  18. LOVASTATIN [Concomitant]
  19. CIMETIDINE [Concomitant]
  20. DIPHENHYDRAMINE [Concomitant]
  21. CRANBERRY [Concomitant]
  22. VITAMIN E [Concomitant]
  23. MULTIVITAMIN [Concomitant]
  24. CALCIUM [Concomitant]
  25. MAGNESIUM [Suspect]
  26. CHROMIUM PICOLINATE [Concomitant]

REACTIONS (7)
  - Cardiac failure [None]
  - Pneumonia [None]
  - Pulmonary oedema [None]
  - Atelectasis [None]
  - Pleural effusion [None]
  - Hyponatraemia [None]
  - Urine output increased [None]
